FAERS Safety Report 23090571 (Version 1)
Quarter: 2023Q4

REPORT INFORMATION
  Report Type: Spontaneous
  Country: US (occurrence: US)
  Receive Date: 20231020
  Receipt Date: 20231020
  Transmission Date: 20240110
  Serious: Yes (Other)
  Sender: FDA-Public Use
  Company Number: US-Calliditas-2023CAL01352

PATIENT
  Age: 28 Year
  Sex: Male

DRUGS (1)
  1. TARPEYO [Suspect]
     Active Substance: BUDESONIDE
     Indication: Haematuria
     Dosage: 16 MG ( 4 MG CAPSULES) ONCE DAILY
     Route: 048
     Dates: start: 20230511

REACTIONS (3)
  - End stage renal disease [Unknown]
  - Off label use [Unknown]
  - Dialysis [Unknown]
